FAERS Safety Report 9171163 (Version 7)
Quarter: 2014Q1

REPORT INFORMATION
  Report Type: Report from Study
  Country: CA (occurrence: CA)
  Receive Date: 20130319
  Receipt Date: 20140219
  Transmission Date: 20141002
  Serious: Yes (Hospitalization, Other)
  Sender: FDA-Public Use
  Company Number: CA-ROCHE-1194427

PATIENT
  Age: 47 Year
  Sex: Female
  Weight: 72.6 kg

DRUGS (19)
  1. ACTEMRA [Suspect]
     Indication: RHEUMATOID ARTHRITIS
     Dosage: TOTAL DOSE MONTHLY AS 600 MG, DATE OF MOST RECENT DOSES PRIOR TO ADVERSE EVENT
     Route: 042
     Dates: start: 20120618
  2. ACTEMRA [Suspect]
     Dosage: 8MG/KG
     Route: 042
     Dates: start: 20130826
  3. ACTEMRA [Suspect]
     Route: 042
     Dates: start: 20130923
  4. ACTEMRA [Suspect]
     Route: 042
     Dates: start: 20131021
  5. ACTEMRA [Suspect]
     Route: 042
     Dates: start: 20131118
  6. METHOTREXATE [Concomitant]
     Route: 065
  7. PERCOCET [Concomitant]
     Route: 065
  8. HYDROMORPH CONTIN [Concomitant]
     Route: 048
  9. EFFEXOR [Concomitant]
     Route: 048
  10. FOLIC ACID [Concomitant]
  11. OXYIR [Concomitant]
     Route: 048
  12. OXYIR [Concomitant]
     Route: 048
  13. ARTHROTEC [Concomitant]
     Dosage: 50/200 MG
     Route: 065
  14. RABEPRAZOLE [Concomitant]
     Route: 048
  15. ESTROGEL [Concomitant]
     Route: 065
  16. FLUTICASONE [Concomitant]
     Route: 065
  17. FENTANYL PATCH [Concomitant]
     Route: 065
  18. DULOXETINE [Concomitant]
     Route: 048
  19. ARAVA [Concomitant]
     Route: 048

REACTIONS (12)
  - Cellulitis [Recovered/Resolved]
  - Pneumonia [Recovered/Resolved]
  - Haemoptysis [Recovered/Resolved]
  - Weight fluctuation [Not Recovered/Not Resolved]
  - Influenza like illness [Recovered/Resolved]
  - Blood lactate dehydrogenase increased [Unknown]
  - Platelet count increased [Unknown]
  - Mean platelet volume decreased [Unknown]
  - White blood cells urine positive [Unknown]
  - Protein urine present [Unknown]
  - Bacterial test [Unknown]
  - Weight decreased [Unknown]
